FAERS Safety Report 9177776 (Version 1)
Quarter: 2012Q4

REPORT INFORMATION
  Report Type: 
  Country: US (occurrence: US)
  Receive Date: 20121012
  Receipt Date: 20121012
  Transmission Date: 20130627
  Serious: Yes (Congenital Anomaly, Other)
  Sender: FDA-Public Use
  Company Number: US-BIOMARINP-003103

PATIENT
  Age: 0 None
  Sex: Male

DRUGS (1)
  1. KUVAN [Suspect]
     Indication: PHENYLKETONURIA
     Route: 064
     Dates: start: 20081028, end: 20081214

REACTIONS (4)
  - Foetal distress syndrome [Recovered/Resolved]
  - MCAD [Unknown]
  - Caesarean section [None]
  - Maternal drugs affecting foetus [None]
